FAERS Safety Report 4620912-3 (Version None)
Quarter: 2005Q1

REPORT INFORMATION
  Report Type: 
  Country: None (occurrence: None)
  Receive Date: 20050325
  Receipt Date: 20050311
  Transmission Date: 20050727
  Serious: No
  Sender: FDA-Public Use
  Company Number: 30605

PATIENT

DRUGS (1)
  1. TRAVATAN [Suspect]
     Route: 047

REACTIONS (1)
  - CIRCULATORY COLLAPSE [None]
